FAERS Safety Report 5237879-X (Version None)
Quarter: 2007Q1

REPORT INFORMATION
  Report Type: 
  Country: None (occurrence: None)
  Receive Date: 20070209
  Receipt Date: 20070202
  Transmission Date: 20070707
  Serious: Yes (Hospitalization)
  Sender: FDA-Public Use
  Company Number: SPV1-2007-00540

PATIENT
  Age: 34 Year
  Sex: Male

DRUGS (2)
  1. ADDERALL 15 [Suspect]
     Dates: start: 20040201
  2. ANTIDEPRESSANTS() [Suspect]

REACTIONS (9)
  - ABNORMAL BEHAVIOUR [None]
  - COGNITIVE DISORDER [None]
  - CONDITION AGGRAVATED [None]
  - DEPRESSION [None]
  - DRUG ABUSER [None]
  - DRUG DEPENDENCE [None]
  - INCORRECT DOSE ADMINISTERED [None]
  - MALAISE [None]
  - SOCIAL AVOIDANT BEHAVIOUR [None]
